FAERS Safety Report 4387405-2 (Version None)
Quarter: 2004Q2

REPORT INFORMATION
  Report Type: 
  Country: None (occurrence: None)
  Receive Date: 20040630
  Receipt Date: 20040421
  Transmission Date: 20050107
  Serious: No
  Sender: FDA-Public Use
  Company Number: US-GLAXOSMITHKLINE-A0508015A

PATIENT
  Age: 53 Year
  Sex: Female

DRUGS (9)
  1. ADVAIR HFA [Suspect]
     Indication: ASTHMA
     Route: 055
  2. FLOVENT [Concomitant]
     Indication: ASTHMA
  3. SEREVENT [Concomitant]
     Indication: ASTHMA
  4. ALBUTEROL [Concomitant]
     Indication: ASTHMA
  5. ALLEGRA [Concomitant]
     Indication: ASTHMA
  6. SINGULAIR [Concomitant]
     Indication: ASTHMA
  7. PREDNISONE [Concomitant]
     Indication: ASTHMA
  8. STEROIDS [Concomitant]
     Indication: ASTHMA
  9. ALLERGY SHOT [Concomitant]
     Indication: DRUG USE FOR UNKNOWN INDICATION
     Route: 058
     Dates: end: 19990101

REACTIONS (2)
  - DRUG INEFFECTIVE [None]
  - DYSPNOEA [None]
